FAERS Safety Report 23798538 (Version 2)
Quarter: 2024Q2

REPORT INFORMATION
  Report Type: Spontaneous
  Country: BG (occurrence: BG)
  Receive Date: 20240430
  Receipt Date: 20240506
  Transmission Date: 20240716
  Serious: Yes (Death, Other)
  Sender: FDA-Public Use
  Company Number: BG-PFIZER INC-PV202400055545

PATIENT
  Age: 66 Year
  Sex: Female
  Weight: 36 kg

DRUGS (4)
  1. INLYTA [Suspect]
     Active Substance: AXITINIB
     Indication: Neoplasm malignant
     Dosage: 5 MG, 2X/DAY
     Dates: start: 20240131, end: 202403
  2. INLYTA [Suspect]
     Active Substance: AXITINIB
     Dosage: 5 MG, 2X/DAY
     Dates: start: 202403, end: 20240418
  3. METFORMIN HYDROCHLORIDE [Concomitant]
     Active Substance: METFORMIN HYDROCHLORIDE
     Indication: Type 1 diabetes mellitus
  4. LEVOTHYROXINE SODIUM [Concomitant]
     Active Substance: LEVOTHYROXINE SODIUM
     Indication: Autoimmune thyroiditis

REACTIONS (9)
  - Coma [Fatal]
  - Cerebral haematoma [Unknown]
  - Cerebral haemorrhage [Unknown]
  - Aphonia [Unknown]
  - Stomatitis [Unknown]
  - Headache [Unknown]
  - Diarrhoea [Unknown]
  - Epistaxis [Unknown]
  - Neoplasm progression [Unknown]

NARRATIVE: CASE EVENT DATE: 20240420
